FAERS Safety Report 8829221 (Version 1)
Quarter: 2012Q4

REPORT INFORMATION
  Report Type: 
  Country: US (occurrence: US)
  Receive Date: 20121008
  Receipt Date: 20121008
  Transmission Date: 20130627
  Serious: Yes (Death, Hospitalization)
  Sender: FDA-Public Use
  Company Number: PHHY2012US087346

PATIENT
  Age: 17 Year
  Sex: Female

DRUGS (7)
  1. PREDNISONE [Suspect]
     Indication: IMMUNOSUPPRESSION
  2. TACROLIMUS [Suspect]
     Indication: IMMUNOSUPPRESSION
  3. MYCOPHENOLATE MOFETIL [Suspect]
     Indication: IMMUNOSUPPRESSION
  4. SOLU-MEDROL [Suspect]
     Indication: IMMUNOSUPPRESSION
  5. GANCICLOVIR [Concomitant]
     Indication: PROPHYLAXIS
     Route: 042
  6. VALGANCICLOVIR [Concomitant]
     Indication: PROPHYLAXIS
     Dosage: 450 mg, twice weekly
     Route: 048
  7. VALGANCICLOVIR [Concomitant]
     Dosage: 450 mg, twice daily
     Route: 048

REACTIONS (19)
  - Post transplant lymphoproliferative disorder [Fatal]
  - Necrosis [Fatal]
  - Cerebral haemorrhage [Fatal]
  - Pyrexia [Fatal]
  - Hypersomnia [Fatal]
  - Headache [Fatal]
  - Fatigue [Fatal]
  - Mental status changes [Fatal]
  - B-cell lymphoma [Fatal]
  - Nervous system disorder [Fatal]
  - Brain herniation [Fatal]
  - Brain oedema [Fatal]
  - Hypotension [Fatal]
  - Epstein-Barr virus antibody positive [Fatal]
  - Cytomegalovirus test positive [Fatal]
  - Graft dysfunction [Fatal]
  - Renal tubular necrosis [Unknown]
  - Renal impairment [Unknown]
  - Multi-organ failure [Unknown]
